FAERS Safety Report 4717743-2 (Version None)
Quarter: 2005Q3

REPORT INFORMATION
  Report Type: 
  Country: None (occurrence: None)
  Receive Date: 20050707
  Receipt Date: 20040825
  Transmission Date: 20060218
  Serious: Yes (Life-Threatening)
  Sender: FDA-Public Use
  Company Number: 04H-163-0271962-00

PATIENT
  Age: 57 Year
  Sex: Male

DRUGS (3)
  1. MORPHINE SULFATE [Suspect]
     Indication: PAIN MANAGEMENT
     Dosage: 1.5 ML WITH 8 MIN LOCKOUT, INTRAVENOUS
     Route: 042
     Dates: start: 20040826, end: 20040827
  2. SODIUM CHLORIDE [Concomitant]
  3. LORAZEPAM [Concomitant]

REACTIONS (1)
  - APNOEA [None]
